FAERS Safety Report 4565125-9 (Version None)
Quarter: 2005Q1

REPORT INFORMATION
  Report Type: 
  Country: None (occurrence: None)
  Receive Date: 20050131
  Receipt Date: 20020211
  Transmission Date: 20050727
  Serious: Yes (Hospitalization, Other)
  Sender: FDA-Public Use
  Company Number: US-BRISTOL-MYERS SQUIBB COMPANY-11719010

PATIENT
  Age: 52 Year
  Sex: Male
  Weight: 81 kg

DRUGS (12)
  1. SERZONE [Suspect]
     Indication: DEPRESSION
     Route: 048
     Dates: start: 20000101, end: 20001201
  2. SERZONE [Suspect]
     Indication: NERVOUSNESS
     Route: 048
     Dates: start: 20000101, end: 20001201
  3. BLOOD PRESSURE MEDICATION [Concomitant]
     Dosage: ^YEARS^
  4. ATENOLOL [Concomitant]
  5. XANAX [Concomitant]
  6. LASIX [Concomitant]
  7. AMITRIPTYLINE HCL [Concomitant]
  8. COUMADIN [Concomitant]
  9. VENTOLIN [Concomitant]
  10. AMBIEN [Concomitant]
  11. ALTACE [Concomitant]
  12. DARVOCET-N 100 [Concomitant]

REACTIONS (9)
  - ABDOMINAL PAIN [None]
  - ASPARTATE AMINOTRANSFERASE INCREASED [None]
  - DEEP VEIN THROMBOSIS [None]
  - HYPERTENSION [None]
  - NAUSEA [None]
  - PROTEIN C DEFICIENCY [None]
  - PULMONARY EMBOLISM [None]
  - VOMITING [None]
  - WEIGHT DECREASED [None]
